FAERS Safety Report 6540140-4 (Version None)
Quarter: 2010Q1

REPORT INFORMATION
  Report Type: 
  Country: None (occurrence: None)
  Receive Date: 20100112
  Receipt Date: 20091120
  Transmission Date: 20100710
  Serious: Yes (Hospitalization)
  Sender: FDA-Public Use
  Company Number: 002931

PATIENT
  Sex: Male

DRUGS (6)
  1. LACOSAMIDE [Suspect]
     Indication: EPILEPSY
     Dosage: (400 MG	TID, 400 MG . 3X ORAL), (500 MG TID ORAL), (400 MG ORAL)
     Route: 048
     Dates: start: 20090504, end: 20090601
  2. LACOSAMIDE [Suspect]
     Indication: EPILEPSY
     Dosage: (400 MG	TID, 400 MG . 3X ORAL), (500 MG TID ORAL), (400 MG ORAL)
     Route: 048
     Dates: start: 20090602, end: 20090707
  3. LACOSAMIDE [Suspect]
     Indication: EPILEPSY
     Dosage: (400 MG	TID, 400 MG . 3X ORAL), (500 MG TID ORAL), (400 MG ORAL)
     Route: 048
     Dates: start: 20090707
  4. LEVETIRACETAM [Concomitant]
  5. LAMOTRIGINE [Concomitant]
  6. XYREM [Concomitant]

REACTIONS (1)
  - CONVULSION [None]
